FAERS Safety Report 6399716-X (Version None)
Quarter: 2009Q4

REPORT INFORMATION
  Report Type: 
  Country: None (occurrence: None)
  Receive Date: 20091014
  Receipt Date: 20091006
  Transmission Date: 20100525
  Serious: Yes (Other)
  Sender: FDA-Public Use
  Company Number: IN-ROCHE-661813

PATIENT
  Sex: Female

DRUGS (3)
  1. PEGASYS [Suspect]
     Route: 065
  2. PEGASYS [Suspect]
     Route: 065
  3. RIBAVIRIN [Concomitant]

REACTIONS (1)
  - ASCITES [None]
